FAERS Safety Report 5940312-3 (Version None)
Quarter: 2008Q4

REPORT INFORMATION
  Report Type: 
  Country: None (occurrence: None)
  Receive Date: 20081104
  Receipt Date: 20081103
  Transmission Date: 20090506
  Serious: Yes (Other)
  Sender: FDA-Public Use
  Company Number: A0754717A

PATIENT
  Age: 57 Year
  Sex: Male
  Weight: 77 kg

DRUGS (4)
  1. SERETIDE DISKUS [Suspect]
     Route: 055
     Dates: start: 20081010
  2. BUSONID [Concomitant]
     Indication: DRUG USE FOR UNKNOWN INDICATION
     Dosage: 1PUFF TWICE PER DAY
     Route: 045
  3. BEROTEC [Concomitant]
     Indication: DRUG USE FOR UNKNOWN INDICATION
     Dosage: 4DROP UNKNOWN
     Route: 065
     Dates: start: 20081029
  4. ATROVENT [Concomitant]
     Indication: DRUG USE FOR UNKNOWN INDICATION
     Dosage: 1DROP UNKNOWN
     Route: 065
     Dates: start: 20081029

REACTIONS (2)
  - ASPHYXIA [None]
  - FATIGUE [None]
